FAERS Safety Report 10540156 (Version 1)
Quarter: 2014Q4

REPORT INFORMATION
  Report Type: Spontaneous
  Country: US (occurrence: None)
  Receive Date: 20141023
  Receipt Date: 20141023
  Transmission Date: 20150529
  Serious: Yes (Other)
  Sender: FDA-Public Use
  Company Number: None

PATIENT
  Age: 36 Year
  Sex: Female
  Weight: 79.83 kg

DRUGS (3)
  1. TRANSDERM SCOP [Suspect]
     Active Substance: SCOPOLAMINE
     Indication: HEADACHE
     Dosage: 2 PATCHES 1 EVERY 3 DAYS APPLIED AS MEDICATED PATCH TO SKIN
     Route: 061
     Dates: start: 20141011, end: 20141014
  2. TRANSDERM SCOP [Suspect]
     Active Substance: SCOPOLAMINE
     Indication: DIZZINESS
     Dosage: 2 PATCHES 1 EVERY 3 DAYS APPLIED AS MEDICATED PATCH TO SKIN
     Route: 061
     Dates: start: 20141011, end: 20141014
  3. TRANSDERM SCOP [Suspect]
     Active Substance: SCOPOLAMINE
     Indication: NAUSEA
     Dosage: 2 PATCHES 1 EVERY 3 DAYS APPLIED AS MEDICATED PATCH TO SKIN
     Route: 061
     Dates: start: 20141011, end: 20141014

REACTIONS (10)
  - Anxiety [None]
  - Abdominal discomfort [None]
  - Heart rate increased [None]
  - Activities of daily living impaired [None]
  - Mydriasis [None]
  - Nausea [None]
  - Hypertension [None]
  - Vision blurred [None]
  - Dizziness [None]
  - Impaired driving ability [None]

NARRATIVE: CASE EVENT DATE: 20141014
